FAERS Safety Report 6707839-8 (Version None)
Quarter: 2010Q2

REPORT INFORMATION
  Report Type: 
  Country: None (occurrence: None)
  Receive Date: 20100503
  Receipt Date: 20090622
  Transmission Date: 20101027
  Serious: Yes (Hospitalization)
  Sender: FDA-Public Use
  Company Number: US-ASTRAZENECA-2009UW11216

PATIENT
  Age: 30817 Day
  Sex: Female

DRUGS (14)
  1. NEXIUM [Suspect]
     Indication: GASTROOESOPHAGEAL REFLUX DISEASE
     Route: 048
     Dates: start: 20090420
  2. NEXIUM [Suspect]
     Route: 048
  3. DIOVAN [Concomitant]
  4. NORVASC [Concomitant]
  5. NEURONTIN [Concomitant]
  6. ZOCOR [Concomitant]
  7. INDERAL [Concomitant]
  8. FOSAMAX [Concomitant]
  9. CLONIDINE [Concomitant]
  10. PREDNISONE [Concomitant]
  11. VITAMIN D [Concomitant]
  12. VITAMIN C [Concomitant]
  13. ASPIRIN [Concomitant]
  14. GLUCOSAMINE CHONDROITIN [Concomitant]

REACTIONS (5)
  - ABDOMINAL PAIN [None]
  - ABDOMINAL PAIN UPPER [None]
  - CONSTIPATION [None]
  - NAUSEA [None]
  - VOMITING [None]
